FAERS Safety Report 5174371-5 (Version None)
Quarter: 2006Q4

REPORT INFORMATION
  Report Type: 
  Country: None (occurrence: None)
  Receive Date: 20061214
  Receipt Date: 20061205
  Transmission Date: 20070319
  Serious: Yes (Other)
  Sender: FDA-Public Use
  Company Number: AU-ELI_LILLY_AND_COMPANY-AU200612001863

PATIENT
  Age: 57 Year
  Sex: Male

DRUGS (1)
  1. GEMZAR [Suspect]
     Indication: NON-SMALL CELL LUNG CANCER
     Dosage: 1500 MG/M2, OTHER
     Route: 042
     Dates: start: 20061101, end: 20060101

REACTIONS (2)
  - EXTREMITY NECROSIS [None]
  - INFARCTION [None]
